FAERS Safety Report 9588297 (Version 1)
Quarter: 2013Q4

REPORT INFORMATION
  Report Type: Spontaneous
  Country: US (occurrence: US)
  Receive Date: 20131003
  Receipt Date: 20131003
  Transmission Date: 20140711
  Serious: No
  Sender: FDA-Public Use
  Company Number: US-AMGEN-USASP2012063725

PATIENT
  Age: 45 Year
  Sex: Female
  Weight: 51.25 kg

DRUGS (8)
  1. ENBREL [Suspect]
     Indication: PSORIATIC ARTHROPATHY
     Dosage: 50 MG/ML, QWK
     Route: 058
     Dates: end: 20121001
  2. DIOVAN [Concomitant]
     Dosage: 40 MG, UNK
  3. MOBIC [Concomitant]
     Dosage: 7.5 MG, UNK
  4. ATENOLOL [Concomitant]
     Dosage: 25 MG, UNK
  5. ULTRAM [Concomitant]
     Dosage: 50 MG, UNK
  6. OMEGA 3                            /01334101/ [Concomitant]
     Dosage: 1200 MG, UNK
  7. MULTIVITAMIN                       /07504101/ [Concomitant]
     Dosage: UNK
  8. MAXZIDE [Concomitant]
     Dosage: UNK

REACTIONS (1)
  - Drug ineffective [Unknown]
